FAERS Safety Report 10233226 (Version 1)
Quarter: 2014Q2

REPORT INFORMATION
  Report Type: Spontaneous
  Country: US (occurrence: US)
  Receive Date: 20140612
  Receipt Date: 20140612
  Transmission Date: 20141212
  Serious: No
  Sender: FDA-Public Use
  Company Number: US-MALLINCKRODT-T201401952

PATIENT
  Age: 54 Year
  Sex: Female

DRUGS (8)
  1. XARTEMIS XR [Suspect]
     Indication: PAIN
     Dosage: 7.5/325 MG, 1 TAB BID
     Route: 048
     Dates: start: 20140415
  2. XARTEMIS XR [Suspect]
     Indication: ARTHRITIS
  3. BUTRANS [Concomitant]
     Indication: PAIN
     Dosage: 20 MCG PATCH
     Route: 062
     Dates: start: 2012, end: 2014
  4. HYDROCODONE W/APAP [Concomitant]
     Indication: PAIN
     Dosage: 10/325 MG TID
     Dates: start: 2003, end: 2014
  5. SOMA [Concomitant]
     Indication: MUSCLE SPASMS
     Dosage: 350 MG, BID
  6. BENADRYL [Concomitant]
     Dosage: UNK
     Dates: start: 201403
  7. IBUPROFEN [Concomitant]
     Dosage: UNK, PRN
  8. ASPIRIN [Concomitant]
     Dosage: UNK, PRN

REACTIONS (3)
  - Drug effect decreased [Recovered/Resolved]
  - Extra dose administered [Unknown]
  - Off label use [Unknown]
